FAERS Safety Report 25616773 (Version 1)
Quarter: 2025Q3

REPORT INFORMATION
  Report Type: Spontaneous
  Country: JP (occurrence: JP)
  Receive Date: 20250729
  Receipt Date: 20250729
  Transmission Date: 20251021
  Serious: Yes (Hospitalization, Other)
  Sender: NOVARTIS
  Company Number: JP-002147023-PHJP2016JP002264

PATIENT
  Age: 78 Year
  Sex: Male

DRUGS (2)
  1. CYCLOSPORINE [Suspect]
     Active Substance: CYCLOSPORINE
     Indication: Nephrotic syndrome
     Route: 048
  2. PREDNISOLONE [Suspect]
     Active Substance: PREDNISOLONE
     Indication: Nephrotic syndrome
     Route: 065

REACTIONS (11)
  - Pseudomonal sepsis [Recovering/Resolving]
  - Cellulitis [Recovering/Resolving]
  - Pain [Unknown]
  - Limb discomfort [Unknown]
  - Oedema peripheral [Unknown]
  - Erythema [Unknown]
  - Purpura [Unknown]
  - Skin erosion [Unknown]
  - Tenderness [Unknown]
  - Septic shock [Recovering/Resolving]
  - Drug ineffective [Unknown]
